FAERS Safety Report 19456352 (Version 1)
Quarter: 2021Q2

REPORT INFORMATION
  Report Type: Spontaneous
  Country: US (occurrence: US)
  Receive Date: 20210624
  Receipt Date: 20210624
  Transmission Date: 20210717
  Serious: Yes (Other)
  Sender: FDA-Public Use
  Company Number: None

PATIENT
  Age: 6 Year
  Sex: Male
  Weight: 29.25 kg

DRUGS (5)
  1. SODIUM CHLORIDE 0.9% 250ML [Concomitant]
     Dates: start: 20210623, end: 20210623
  2. DIPHENHYDRAMINE LIQUID 12.5MG/5ML [Concomitant]
     Dates: start: 20210623, end: 20210623
  3. GAMUNEX?C [Suspect]
     Active Substance: HUMAN IMMUNOGLOBULIN G
     Indication: IMMUNODEFICIENCY COMMON VARIABLE
     Dosage: ?          OTHER FREQUENCY:ONCE EVERY 4 WEEKS;?
     Route: 042
     Dates: start: 20210623, end: 20210623
  4. GAMUNEX?C [Suspect]
     Active Substance: HUMAN IMMUNOGLOBULIN G
     Indication: IMMUNODEFICIENCY COMMON VARIABLE
     Dosage: ?          OTHER FREQUENCY:ONCE EVERY 4 WEEKS;?
     Route: 042
     Dates: start: 20210623, end: 20210623
  5. ACETAMINOPHEN LIQUID 160MG/5ML [Concomitant]
     Dates: start: 20210623, end: 20210623

REACTIONS (4)
  - Pruritus [None]
  - Rash [None]
  - Urticaria [None]
  - Condition aggravated [None]

NARRATIVE: CASE EVENT DATE: 20210623
